FAERS Safety Report 7285505-0 (Version None)
Quarter: 2011Q1

REPORT INFORMATION
  Report Type: 
  Country: None (occurrence: None)
  Receive Date: 20110210
  Receipt Date: 20110207
  Transmission Date: 20110831
  Serious: Yes (Hospitalization)
  Sender: FDA-Public Use
  Company Number: FR-PFIZER INC-2010179337

PATIENT
  Age: 9 Year
  Sex: Male

DRUGS (5)
  1. AVASTIN [Suspect]
     Indication: RHABDOMYOSARCOMA
     Dosage: UNK
     Dates: start: 20101101
  2. ACTINOMYCIN D [Suspect]
     Indication: RHABDOMYOSARCOMA
     Dosage: UNK
     Dates: start: 20101101
  3. IFOSFAMIDE [Suspect]
     Indication: RHABDOMYOSARCOMA
     Dosage: UNK
     Dates: start: 20101101
  4. VINCRISTINE SULFATE [Suspect]
     Indication: RHABDOMYOSARCOMA
     Dosage: UNK
     Dates: start: 20101101
  5. DOXORUBICIN HCL [Suspect]
     Indication: RHABDOMYOSARCOMA
     Dosage: UNK
     Dates: start: 20101101

REACTIONS (3)
  - FIXED ERUPTION [None]
  - RASH VESICULAR [None]
  - FEBRILE BONE MARROW APLASIA [None]
